FAERS Safety Report 23668885 (Version 2)
Quarter: 2024Q1

REPORT INFORMATION
  Report Type: Spontaneous
  Country: CN (occurrence: CN)
  Receive Date: 20240325
  Receipt Date: 20240328
  Transmission Date: 20240409
  Serious: Yes (Other)
  Sender: FDA-Public Use
  Company Number: CN-002147023-NVSC2024CN061816

PATIENT
  Age: 27 Year
  Sex: Male
  Weight: 52.9 kg

DRUGS (1)
  1. SECUKINUMAB [Suspect]
     Active Substance: SECUKINUMAB
     Indication: Ankylosing spondylitis
     Dosage: 150 MG, QD
     Route: 058
     Dates: start: 20240306, end: 20240308

REACTIONS (15)
  - Influenza like illness [Recovering/Resolving]
  - Papule [Recovering/Resolving]
  - Pruritus [Recovering/Resolving]
  - Upper respiratory tract infection [Recovering/Resolving]
  - Pyrexia [Recovered/Resolved]
  - Productive cough [Recovering/Resolving]
  - Oropharyngeal pain [Recovering/Resolving]
  - Nasal obstruction [Recovering/Resolving]
  - Myalgia [Recovered/Resolved]
  - Swelling [Recovered/Resolved]
  - Blood pressure decreased [Recovering/Resolving]
  - Heart rate increased [Recovering/Resolving]
  - C-reactive protein increased [Recovering/Resolving]
  - Pharyngeal erythema [Recovering/Resolving]
  - Rash [Recovering/Resolving]

NARRATIVE: CASE EVENT DATE: 20240306
